FAERS Safety Report 25204432 (Version 2)
Quarter: 2025Q2

REPORT INFORMATION
  Report Type: Spontaneous
  Country: US (occurrence: US)
  Receive Date: 20250416
  Receipt Date: 20250425
  Transmission Date: 20250717
  Serious: Yes (Hospitalization)
  Sender: TEVA
  Company Number: US-TEVA-VS-3319993

PATIENT
  Age: 38 Year
  Sex: Male

DRUGS (1)
  1. TESTOSTERONE [Suspect]
     Active Substance: TESTOSTERONE
     Indication: Hormone replacement therapy
     Route: 030

REACTIONS (5)
  - Dilated cardiomyopathy [Unknown]
  - Cerebral infarction [Unknown]
  - Acute myocardial infarction [Unknown]
  - Coronary artery occlusion [Unknown]
  - Embolism [Unknown]
